FAERS Safety Report 25526157 (Version 1)
Quarter: 2025Q3

REPORT INFORMATION
  Report Type: Spontaneous
  Country: IN (occurrence: IN)
  Receive Date: 20250707
  Receipt Date: 20250707
  Transmission Date: 20251021
  Serious: Yes (Other)
  Sender: MYLAN
  Company Number: IN-MYLANLABS-2025M1055592

PATIENT
  Age: 2 Decade
  Sex: Female

DRUGS (3)
  1. PHENYTOIN [Suspect]
     Active Substance: PHENYTOIN
     Indication: Epilepsy
     Dosage: 100 MILLIGRAM, BID
  2. CARBAMAZEPINE [Suspect]
     Active Substance: CARBAMAZEPINE
     Indication: Epilepsy
  3. VALPROATE [Suspect]
     Active Substance: VALPROIC ACID
     Indication: Epilepsy

REACTIONS (2)
  - Drug ineffective [Unknown]
  - Tooth disorder [Unknown]
